FAERS Safety Report 7153491-X (Version None)
Quarter: 2010Q4

REPORT INFORMATION
  Report Type: 
  Country: None (occurrence: None)
  Receive Date: 20101213
  Receipt Date: 20101207
  Transmission Date: 20110411
  Serious: Yes (Life-Threatening)
  Sender: FDA-Public Use
  Company Number: B0679494A

PATIENT
  Sex: Female
  Weight: 62 kg

DRUGS (9)
  1. TYKERB [Suspect]
     Indication: BREAST CANCER
     Dosage: 1250MG PER DAY
     Route: 048
     Dates: start: 20090813, end: 20091218
  2. XELODA [Concomitant]
     Dosage: 3000MG PER DAY
     Route: 048
     Dates: start: 20090813, end: 20091218
  3. CINAL [Concomitant]
     Indication: BREAST CANCER
     Dosage: 6IUAX PER DAY
     Route: 048
     Dates: start: 20090813, end: 20091218
  4. ZOMETA [Concomitant]
     Route: 042
     Dates: start: 20091015, end: 20091204
  5. CYCLOPHOSPHAMIDE [Concomitant]
     Dosage: 4200MG PER DAY
     Dates: start: 20041001, end: 20050301
  6. TRASTUZUMAB [Concomitant]
     Dosage: 3000MG PER DAY
     Route: 042
     Dates: start: 20081001, end: 20081001
  7. TRASTUZUMAB [Concomitant]
     Dosage: 1440MG PER DAY
     Route: 042
     Dates: start: 20081001, end: 20090101
  8. TRASTUZUMAB [Concomitant]
     Dosage: 840MG PER DAY
     Route: 042
     Dates: start: 20090201, end: 20090301
  9. TRASTUZUMAB [Concomitant]
     Dosage: 1200MG PER DAY
     Route: 042
     Dates: start: 20090401, end: 20090801

REACTIONS (1)
  - CARDIAC FAILURE [None]
